FAERS Safety Report 10067437 (Version 4)
Quarter: 2014Q2

REPORT INFORMATION
  Report Type: Spontaneous
  Country: US (occurrence: US)
  Receive Date: 20140409
  Receipt Date: 20140627
  Transmission Date: 20141212
  Serious: Yes (Death, Hospitalization)
  Sender: FDA-Public Use
  Company Number: US-JNJFOC-20140319239

PATIENT
  Age: 86 Year
  Sex: Male
  Weight: 68.04 kg

DRUGS (1)
  1. ZYTIGA [Suspect]
     Indication: PROSTATE CANCER
     Route: 048
     Dates: start: 2013

REACTIONS (7)
  - Death [Fatal]
  - Pneumonia [Recovering/Resolving]
  - Dementia [Unknown]
  - Hospitalisation [Recovered/Resolved]
  - Rectal haemorrhage [Unknown]
  - Drug dose omission [Unknown]
  - Staphylococcal infection [Unknown]
